FAERS Safety Report 8012533-X (Version None)
Quarter: 2011Q4

REPORT INFORMATION
  Report Type: 
  Country: None (occurrence: None)
  Receive Date: 20111229
  Receipt Date: 20111220
  Transmission Date: 20120403
  Serious: Yes (Hospitalization)
  Sender: FDA-Public Use
  Company Number: US-BIOGENIDEC-2011BI038278

PATIENT
  Age: 55 Year
  Sex: Female

DRUGS (4)
  1. AVONEX [Suspect]
     Route: 030
     Dates: start: 20080406, end: 20080515
  2. AVONEX [Suspect]
     Route: 030
     Dates: start: 20080616, end: 20101215
  3. AVONEX [Suspect]
     Indication: MULTIPLE SCLEROSIS
     Route: 030
     Dates: start: 20110625
  4. AVONEX [Suspect]
     Route: 030
     Dates: start: 20060501

REACTIONS (3)
  - HUMERUS FRACTURE [None]
  - FALL [None]
  - JOINT INJURY [None]
